FAERS Safety Report 6269861-8 (Version None)
Quarter: 2009Q3

REPORT INFORMATION
  Report Type: 
  Country: None (occurrence: None)
  Receive Date: 20090716
  Receipt Date: 20090714
  Transmission Date: 20100115
  Serious: Yes (Other)
  Sender: FDA-Public Use
  Company Number: JP-ROXANE LABORATORIES, INC.-2009-RO-00687RO

PATIENT
  Age: 70 Year
  Sex: Male

DRUGS (3)
  1. AMLODIPINE [Suspect]
     Indication: HYPERTENSION
  2. FEXOFENADINE [Concomitant]
     Indication: PSEUDOLYMPHOMA
     Dosage: 120 MG
     Route: 048
  3. BETAMETHASONE [Concomitant]
     Indication: PSEUDOLYMPHOMA
     Route: 061

REACTIONS (1)
  - PSEUDOLYMPHOMA [None]
